FAERS Safety Report 20757926 (Version 1)
Quarter: 2022Q2

REPORT INFORMATION
  Report Type: Spontaneous
  Country: FR (occurrence: FR)
  Receive Date: 20220427
  Receipt Date: 20220427
  Transmission Date: 20220721
  Serious: Yes (Death)
  Sender: FDA-Public Use
  Company Number: None

PATIENT
  Age: 65 Year
  Sex: Male
  Weight: 71 kg

DRUGS (10)
  1. CANDESARTAN CILEXETIL [Suspect]
     Active Substance: CANDESARTAN CILEXETIL
     Indication: Hypertension
     Dosage: UNIT DOSE: 8 MG, FREQUENCY : 1 DAY
     Route: 048
  2. ESOMEPRAZOLE [Suspect]
     Active Substance: ESOMEPRAZOLE
     Indication: Prophylaxis against gastrointestinal ulcer
     Dosage: UNIT DOSE: 20 MG, FREQUENCY TIME : 1 DAY
     Route: 048
  3. URAPIDIL [Suspect]
     Active Substance: URAPIDIL
     Indication: Hypertension
     Dosage: UNIT DOSE: 180 MG, FREQUENCY TIME 1 DAY
     Route: 048
  4. CALCIUM CHLORIDE [Suspect]
     Active Substance: CALCIUM CHLORIDE
     Indication: Mineral supplementation
     Dosage: CALCIUM (CHLORURE DE), UNIT DOSE: 500 MG, FREQUENCY TIME : 1 DAY
     Route: 048
  5. NULOJIX [Suspect]
     Active Substance: BELATACEPT
     Indication: Prophylaxis against transplant rejection
     Dosage: UNIT DOSE: 360 MG, FREQUENCY TIME : 1 MONTH, STRENGTH : 250 MG
     Route: 041
     Dates: start: 201701
  6. PREDNISONE [Suspect]
     Active Substance: PREDNISONE
     Indication: Prophylaxis against transplant rejection
     Dosage: UNIT DOSE: 10 MG, FREQUENCY TIME: 1 DAY
     Route: 048
  7. SOTROVIMAB [Suspect]
     Active Substance: SOTROVIMAB
     Indication: COVID-19
     Dosage: UNIT DOSE: 500 MG, STRENGTH: 500 MG, FREQUENCY TIME : 1 DAY, DURATION : 1 DAY
     Route: 041
     Dates: start: 20220404, end: 20220404
  8. METOPROLOL [Suspect]
     Active Substance: METOPROLOL
     Indication: Hypertension
     Dosage: METOPROLOL (TARTRATE DE), UNIT DOSE: 100 MG, FREQUENCY TIME : 1 DAY
     Route: 048
  9. LERCANIDIPINE [Suspect]
     Active Substance: LERCANIDIPINE
     Indication: Hypertension
     Dosage: UNIT DOSE: 20 MG, STRENGTH: 20 MG, FREQUENCY TIME : 1 DAY
     Route: 048
  10. KARDEGIC [Suspect]
     Active Substance: ASPIRIN DL-LYSINE
     Indication: Cardiomyopathy
     Dosage: UNIT DOSE: 1 DF, FREQUENCY TIME : 1 DAY, POWDER FOR ORAL SOLUTION IN SACHET-DOSE, STRENGTH : 75 MG
     Route: 048

REACTIONS (1)
  - Sudden death [Fatal]

NARRATIVE: CASE EVENT DATE: 20220407
